FAERS Safety Report 8075314-7 (Version None)
Quarter: 2012Q1

REPORT INFORMATION
  Report Type: 
  Country: None (occurrence: None)
  Receive Date: 20120127
  Receipt Date: 20120120
  Transmission Date: 20120608
  Serious: Yes (Hospitalization, Disabling)
  Sender: FDA-Public Use
  Company Number: JP-JNJFOC-20111204370

PATIENT
  Sex: Female

DRUGS (15)
  1. CAMOSTATE [Concomitant]
     Indication: CHOLELITHIASIS
     Route: 048
     Dates: start: 20110425
  2. URSO 250 [Concomitant]
     Indication: PANCREATITIS CHRONIC
     Route: 048
     Dates: start: 20110425
  3. ONEALFA [Concomitant]
     Indication: OSTEOPOROSIS
     Route: 048
     Dates: start: 20110425
  4. URSO 250 [Concomitant]
     Indication: CHOLELITHIASIS
     Route: 048
     Dates: start: 20110425
  5. ASPARA-CA [Concomitant]
     Indication: OSTEOPOROSIS
     Route: 048
     Dates: start: 20110425
  6. EVISTA [Concomitant]
     Indication: OSTEOPOROSIS
     Route: 048
     Dates: start: 20110425
  7. LEVOFLOXACIN [Suspect]
     Route: 048
     Dates: start: 20110523, end: 20110608
  8. PANCREAZE [Concomitant]
     Indication: PANCREATITIS CHRONIC
     Route: 048
     Dates: start: 20110425
  9. CAMOSTATE [Concomitant]
     Indication: PANCREATITIS CHRONIC
     Route: 048
     Dates: start: 20110425
  10. RABEPRAZOLE SODIUM [Concomitant]
     Indication: GASTROOESOPHAGEAL REFLUX DISEASE
     Route: 048
     Dates: start: 20110425
  11. ALEROFF [Concomitant]
     Route: 065
  12. LEVOFLOXACIN [Suspect]
     Indication: CYSTITIS
     Route: 048
     Dates: start: 20110425, end: 20110429
  13. LANSOPRAZOLE [Concomitant]
     Route: 065
  14. PANCREAZE [Concomitant]
     Indication: CHOLELITHIASIS
     Route: 048
     Dates: start: 20110425
  15. LEVOFLOXACIN [Suspect]
     Route: 048
     Dates: start: 20110509, end: 20110515

REACTIONS (2)
  - TENDON DISORDER [None]
  - LIGAMENT RUPTURE [None]
